FAERS Safety Report 13901829 (Version 1)
Quarter: 2017Q3

REPORT INFORMATION
  Report Type: Spontaneous
  Country: US (occurrence: US)
  Receive Date: 20170824
  Receipt Date: 20170824
  Transmission Date: 20171127
  Serious: No
  Sender: FDA-Public Use
  Company Number: US-ROCHE-1098067

PATIENT
  Age: 55 Year
  Sex: Female

DRUGS (2)
  1. HERCEPTIN [Suspect]
     Active Substance: TRASTUZUMAB
     Indication: BREAST CANCER METASTATIC
     Route: 065
     Dates: start: 201106
  2. TAXOL [Concomitant]
     Active Substance: PACLITAXEL
     Indication: BREAST CANCER METASTATIC

REACTIONS (3)
  - Liver disorder [Unknown]
  - Ejection fraction decreased [Unknown]
  - White blood cell count decreased [Unknown]
